FAERS Safety Report 18436993 (Version 2)
Quarter: 2020Q4

REPORT INFORMATION
  Report Type: Spontaneous
  Country: US (occurrence: US)
  Receive Date: 20201028
  Receipt Date: 20201029
  Transmission Date: 20210114
  Serious: Yes (Hospitalization, Other)
  Sender: FDA-Public Use
  Company Number: US-PFIZER INC-2020411999

PATIENT
  Age: 54 Year
  Sex: Male

DRUGS (1)
  1. AMLODIPINE BESILATE [Suspect]
     Active Substance: AMLODIPINE BESYLATE
     Indication: HYPERTENSION
     Dosage: 70 DF (INTENTIONAL OVERDOSE OF 70 AMLODIPINE TABLETS)
     Route: 048

REACTIONS (2)
  - Organising pneumonia [Recovered/Resolved]
  - Intentional overdose [Unknown]
